FAERS Safety Report 4277729-1 (Version None)
Quarter: 2004Q1

REPORT INFORMATION
  Report Type: 
  Country: None (occurrence: None)
  Receive Date: 20040121
  Receipt Date: 20040107
  Transmission Date: 20041129
  Serious: Yes (Hospitalization)
  Sender: FDA-Public Use
  Company Number: NO-SHR-04-019625

PATIENT
  Age: 51 Year
  Sex: Female

DRUGS (1)
  1. MAGNEVIST [Suspect]
     Dosage: INTRAVENOUS
     Route: 042
     Dates: start: 20031107, end: 20031107

REACTIONS (1)
  - GASTROINTESTINAL DISORDER [None]
